FAERS Safety Report 16173379 (Version 1)
Quarter: 2019Q2

REPORT INFORMATION
  Report Type: Spontaneous
  Country: US (occurrence: US)
  Receive Date: 20190408
  Receipt Date: 20190408
  Transmission Date: 20190711
  Serious: Yes (Other)
  Sender: FDA-Public Use
  Company Number: None

PATIENT
  Age: 41 Year
  Sex: Female
  Weight: 83.25 kg

DRUGS (1)
  1. IMURAN [Suspect]
     Active Substance: AZATHIOPRINE
     Indication: ARTHRITIS
     Dosage: ?          QUANTITY:1 TABLET(S);?
     Route: 048
     Dates: start: 20190301, end: 20190328

REACTIONS (12)
  - Depression [None]
  - Taste disorder [None]
  - Intrusive thoughts [None]
  - Feeling abnormal [None]
  - Weight decreased [None]
  - Memory impairment [None]
  - Dizziness [None]
  - Change of bowel habit [None]
  - Anxiety [None]
  - Confusional state [None]
  - Irritability [None]
  - Decreased appetite [None]

NARRATIVE: CASE EVENT DATE: 20190328
